FAERS Safety Report 8386521-8 (Version None)
Quarter: 2012Q2

REPORT INFORMATION
  Report Type: 
  Country: None (occurrence: None)
  Receive Date: 20120523
  Receipt Date: 20120523
  Transmission Date: 20120825
  Serious: Yes (Hospitalization)
  Sender: FDA-Public Use
  Company Number: None

PATIENT
  Age: 53 Year
  Sex: Female
  Weight: 79 kg

DRUGS (17)
  1. BACTRIM [Concomitant]
  2. ZOVIRAX [Concomitant]
  3. PREVACID [Concomitant]
  4. CALCIUM CARBONATE/VITAMIN D [Concomitant]
  5. NEURONTIN [Concomitant]
  6. ASPIRIN [Concomitant]
  7. OXYCODONE -ROXICODONE- [Concomitant]
  8. BORTEZOMIB [Concomitant]
  9. REVLIMID [Suspect]
     Indication: MULTIPLE MYELOMA
     Dosage: 10MG DAILY -DAY 1-10- PO
     Route: 048
     Dates: start: 20110801, end: 20111230
  10. REVLIMID [Concomitant]
  11. ZOLEDRONIC ACID [Concomitant]
  12. SULFAMETHOXAZOLE AND TRIMETHOPRIM [Concomitant]
  13. ZOLOFT [Concomitant]
  14. CALCIUM + D ORAL [Concomitant]
  15. CALCIUM/D3 [Concomitant]
  16. SEPTRA [Concomitant]
  17. DECADRON [Concomitant]

REACTIONS (3)
  - PULMONARY ALVEOLAR HAEMORRHAGE [None]
  - GENERAL PHYSICAL HEALTH DETERIORATION [None]
  - INFECTION [None]
